FAERS Safety Report 19372110 (Version 2)
Quarter: 2021Q2

REPORT INFORMATION
  Report Type: Spontaneous
  Country: CA (occurrence: CA)
  Receive Date: 20210604
  Receipt Date: 20210614
  Transmission Date: 20210717
  Serious: Yes (Other)
  Sender: FDA-Public Use
  Company Number: CA-CELLTRION INC.-2020CA023999

PATIENT

DRUGS (19)
  1. ACETAMINOPHEN. [Concomitant]
     Active Substance: ACETAMINOPHEN
     Indication: PREMEDICATION
     Dosage: 650 MG
     Dates: start: 20200716, end: 20200716
  2. DIMENHYDRINATE. [Concomitant]
     Active Substance: DIMENHYDRINATE
     Dosage: 25 MG
     Route: 048
     Dates: start: 20200730, end: 20200730
  3. INFLECTRA [Suspect]
     Active Substance: INFLIXIMAB-DYYB
     Dosage: 400 MG Q (EVERY) 0, 2, 6 WEEKS, THEN EVERY 8 WEEKS
     Route: 042
     Dates: start: 20200826
  4. DIPHENHYDRAMINE. [Concomitant]
     Active Substance: DIPHENHYDRAMINE
     Dosage: 25 UNK
     Dates: start: 20201022, end: 20201022
  5. HYDROCORTISONE. [Concomitant]
     Active Substance: HYDROCORTISONE
     Dosage: 100 UNK
     Dates: start: 20201022, end: 20201022
  6. HYDROCORTISONE. [Concomitant]
     Active Substance: HYDROCORTISONE
     Indication: PREMEDICATION
     Dosage: 100 MG
     Dates: start: 20200716, end: 20200716
  7. INFLECTRA [Suspect]
     Active Substance: INFLIXIMAB-DYYB
     Indication: PSORIATIC ARTHROPATHY
     Dosage: 400 MG Q (EVERY) 0, 2, 6 WEEKS, THEN EVERY 8 WEEKS
     Route: 042
     Dates: start: 20200716
  8. INFLECTRA [Suspect]
     Active Substance: INFLIXIMAB-DYYB
     Dosage: 400 MG Q (EVERY)EVERY 6 WEEKS
     Route: 042
     Dates: start: 20210601
  9. ACETAMINOPHEN. [Concomitant]
     Active Substance: ACETAMINOPHEN
     Dosage: 325 MG
     Dates: start: 20201022, end: 20201022
  10. DIPHENHYDRAMINE. [Concomitant]
     Active Substance: DIPHENHYDRAMINE
     Dosage: 25 UNK
     Dates: start: 20200730, end: 20200730
  11. INFLECTRA [Suspect]
     Active Substance: INFLIXIMAB-DYYB
     Dosage: 400 MG Q (EVERY)EVERY 6 WEEKS
     Route: 042
     Dates: start: 20210420
  12. DIMENHYDRINATE. [Concomitant]
     Active Substance: DIMENHYDRINATE
     Dosage: 25 MG
     Route: 048
     Dates: start: 20201022, end: 20201022
  13. DIPHENHYDRAMINE. [Concomitant]
     Active Substance: DIPHENHYDRAMINE
     Indication: PREMEDICATION
     Dosage: 50 MG
     Dates: start: 20200716, end: 20200716
  14. HYDROCORTISONE. [Concomitant]
     Active Substance: HYDROCORTISONE
     Dosage: 100 UNK
     Dates: start: 20200730, end: 20200730
  15. INFLECTRA [Suspect]
     Active Substance: INFLIXIMAB-DYYB
     Dosage: 400 MG Q (EVERY) 0, 2, 6 WEEKS, THEN EVERY 8 WEEKS
     Route: 042
     Dates: start: 20200730
  16. INFLECTRA [Suspect]
     Active Substance: INFLIXIMAB-DYYB
     Dosage: 400 MG Q (EVERY) 0, 2, 6 WEEKS, THEN EVERY 8 WEEKS
     Route: 042
     Dates: start: 20210216
  17. ACETAMINOPHEN. [Concomitant]
     Active Substance: ACETAMINOPHEN
     Dosage: 650 UNK
     Dates: start: 20200730, end: 20200730
  18. DIMENHYDRINATE. [Concomitant]
     Active Substance: DIMENHYDRINATE
     Indication: PREMEDICATION
     Dosage: 25 MG
     Route: 048
     Dates: start: 20200716, end: 20200716
  19. INFLECTRA [Suspect]
     Active Substance: INFLIXIMAB-DYYB
     Dosage: 400 MG Q (EVERY) 0, 2, 6 WEEKS, THEN EVERY 8 WEEKS
     Route: 042
     Dates: start: 20201022

REACTIONS (18)
  - Off label use [Unknown]
  - Kidney infection [Not Recovered/Not Resolved]
  - Heart rate decreased [Unknown]
  - Intentional product use issue [Unknown]
  - Blood pressure systolic increased [Unknown]
  - Tooth abscess [Not Recovered/Not Resolved]
  - Tooth infection [Recovered/Resolved]
  - Rhinorrhoea [Not Recovered/Not Resolved]
  - Oropharyngeal pain [Not Recovered/Not Resolved]
  - Gingival swelling [Unknown]
  - Back pain [Unknown]
  - Cough [Not Recovered/Not Resolved]
  - Psoriatic arthropathy [Unknown]
  - Therapeutic response shortened [Unknown]
  - Gingival pain [Unknown]
  - Discomfort [Unknown]
  - Renal colic [Unknown]
  - Off label use [Unknown]

NARRATIVE: CASE EVENT DATE: 20200716
